FAERS Safety Report 7125490-5 (Version None)
Quarter: 2010Q4

REPORT INFORMATION
  Report Type: 
  Country: None (occurrence: None)
  Receive Date: 20101129
  Receipt Date: 20101118
  Transmission Date: 20110411
  Serious: Yes (Other)
  Sender: FDA-Public Use
  Company Number: IL-PFIZER INC-2010153749

PATIENT
  Sex: Female

DRUGS (1)
  1. DETRUSITOL [Suspect]

REACTIONS (3)
  - DRY MOUTH [None]
  - HYPONATRAEMIA [None]
  - URINARY RETENTION [None]
